FAERS Safety Report 8504499-0 (Version None)
Quarter: 2012Q3

REPORT INFORMATION
  Report Type: 
  Country: None (occurrence: None)
  Receive Date: 20120711
  Receipt Date: 20120703
  Transmission Date: 20120928
  Serious: Yes (Hospitalization)
  Sender: FDA-Public Use
  Company Number: US-JNJFOC-20120703902

PATIENT
  Age: 67 Year
  Sex: Female
  Weight: 95.71 kg

DRUGS (1)
  1. XARELTO [Suspect]
     Indication: THROMBOSIS PROPHYLAXIS
     Route: 048
     Dates: start: 20120414, end: 20120425

REACTIONS (2)
  - ARTHRITIS INFECTIVE [None]
  - HAEMATOMA [None]
